FAERS Safety Report 4637164-0 (Version None)
Quarter: 2005Q2

REPORT INFORMATION
  Report Type: 
  Country: None (occurrence: None)
  Receive Date: 20050325
  Receipt Date: 20041203
  Transmission Date: 20051028
  Serious: No
  Sender: FDA-Public Use
  Company Number: USA040978143

PATIENT
  Age: 78 Year
  Sex: Female

DRUGS (2)
  1. FORTEO [Suspect]
     Indication: OSTEOPOROSIS
     Dates: start: 20040830
  2. PREDNISONE [Concomitant]

REACTIONS (3)
  - ASTHMA [None]
  - MUSCLE SPASMS [None]
  - NAUSEA [None]
